FAERS Safety Report 5389486-6 (Version None)
Quarter: 2007Q3

REPORT INFORMATION
  Report Type: 
  Country: None (occurrence: None)
  Receive Date: 20070717
  Receipt Date: 20070712
  Transmission Date: 20080115
  Serious: Yes (Hospitalization)
  Sender: FDA-Public Use
  Company Number: FRWYE017412JUL07

PATIENT
  Sex: Male

DRUGS (7)
  1. NOVATREX [Suspect]
     Indication: PSORIASIS
     Dosage: UNKNOWN
     Route: 048
     Dates: start: 20031101, end: 20060301
  2. KETEK [Suspect]
     Indication: LUNG INFECTION
     Dosage: UNKNOWN
     Route: 048
     Dates: start: 20060214, end: 20060301
  3. ETHANOL [Suspect]
     Dosage: UNKNOWN
     Route: 048
  4. DETENSIEL [Concomitant]
     Indication: ESSENTIAL HYPERTENSION
     Route: 048
  5. GLUCOPHAGE [Concomitant]
     Indication: TYPE 2 DIABETES MELLITUS
     Route: 048
  6. EFFEXOR [Suspect]
     Indication: DEPRESSION
     Dosage: UNKNOWN
     Route: 048
     Dates: start: 20060101, end: 20060301
  7. DIAMICRON [Concomitant]
     Indication: TYPE 2 DIABETES MELLITUS
     Route: 048

REACTIONS (7)
  - ANAEMIA [None]
  - CONDITION AGGRAVATED [None]
  - ERYTHRODERMIC PSORIASIS [None]
  - GAMMA-GLUTAMYLTRANSFERASE INCREASED [None]
  - HEPATIC CIRRHOSIS [None]
  - HEPATIC FIBROSIS [None]
  - LUNG INFECTION [None]
